FAERS Safety Report 9332892 (Version 1)
Quarter: 2013Q2

REPORT INFORMATION
  Report Type: Spontaneous
  Country: US (occurrence: US)
  Receive Date: 20130606
  Receipt Date: 20130606
  Transmission Date: 20140414
  Serious: No
  Sender: FDA-Public Use
  Company Number: US-BAYER-2013-069513

PATIENT
  Age: 30 Year
  Sex: Female
  Weight: 88 kg

DRUGS (2)
  1. ALEVE TABLET [Suspect]
     Indication: BACK PAIN
     Dosage: 1 DF, BID
     Route: 048
     Dates: start: 201305, end: 201305
  2. ALEVE TABLET [Suspect]
     Indication: PAIN IN EXTREMITY

REACTIONS (1)
  - Drug ineffective [None]
